FAERS Safety Report 5819922-X (Version None)
Quarter: 2008Q3

REPORT INFORMATION
  Report Type: 
  Country: None (occurrence: None)
  Receive Date: 20080717
  Receipt Date: 20080711
  Transmission Date: 20090109
  Serious: Yes (Other)
  Sender: FDA-Public Use
  Company Number: 2008SP014332

PATIENT
  Sex: Female

DRUGS (2)
  1. MIRALAX [Suspect]
     Indication: COLONOSCOPY
  2. MIRALAX [Suspect]
     Indication: OFF LABEL USE

REACTIONS (2)
  - ABNORMAL FAECES [None]
  - FAECES DISCOLOURED [None]
